FAERS Safety Report 8322950-6 (Version None)
Quarter: 2012Q2

REPORT INFORMATION
  Report Type: 
  Country: None (occurrence: None)
  Receive Date: 20120430
  Receipt Date: 20120416
  Transmission Date: 20120825
  Serious: Yes (Death, Hospitalization, Other)
  Sender: FDA-Public Use
  Company Number: US-MYLANLABS-2009AC000150

PATIENT
  Age: 78 Year
  Sex: Female
  Weight: 61 kg

DRUGS (43)
  1. DILTIAZEM [Concomitant]
  2. ZITHROMAX [Concomitant]
  3. FAMOTIDINE [Concomitant]
  4. PAPAIN [Concomitant]
  5. COVERA-HS [Concomitant]
  6. TAGAMET [Concomitant]
  7. ENBREL [Concomitant]
  8. VITAMIN TAB [Concomitant]
  9. LOPRESSOR [Concomitant]
  10. CIPROFLOXACIN [Concomitant]
  11. ACETAMINOPHEN [Concomitant]
  12. FISH OIL [Concomitant]
  13. ROCEPHIN [Concomitant]
  14. LORAZEPAM [Concomitant]
  15. LEVAQUIN [Concomitant]
  16. DETROL [Concomitant]
  17. OXYCONTIN [Concomitant]
  18. AVELOX [Concomitant]
  19. DIGOXIN [Suspect]
     Indication: PRODUCT USED FOR UNKNOWN INDICATION
     Route: 048
     Dates: start: 20040329, end: 20070929
  20. ASPIRIN [Concomitant]
  21. VALTREX [Concomitant]
  22. GLUCOSAMINE [Concomitant]
  23. PANAFIL [Concomitant]
  24. VITAMIN D [Concomitant]
  25. ACCUPRIL [Concomitant]
  26. LOVENOX [Concomitant]
  27. DOCUSATE SODIUM [Concomitant]
  28. HEPARIN [Concomitant]
  29. METHOTREXATE [Concomitant]
  30. ADVAIR DISKUS 100/50 [Concomitant]
  31. LOTEMAX [Concomitant]
  32. CEPHALEXIN [Concomitant]
  33. ZOLPIDEM [Concomitant]
  34. PROCAN [Concomitant]
  35. FELDENE [Concomitant]
  36. METFORMIN HCL [Concomitant]
  37. PREDNISONE [Concomitant]
  38. GLIMEPIRIDE [Concomitant]
  39. ACULAR [Concomitant]
  40. AVANDIA [Concomitant]
  41. GABAPENTIN [Concomitant]
  42. AMIODARONE HCL [Concomitant]
  43. RESTASIS [Concomitant]

REACTIONS (106)
  - CARDIAC DISORDER [None]
  - ERYTHEMA [None]
  - PAIN [None]
  - DISORIENTATION [None]
  - DEMENTIA [None]
  - LEUKOCYTOSIS [None]
  - ARTHRALGIA [None]
  - CENTRAL VENOUS CATHETERISATION [None]
  - CONTUSION [None]
  - FOOT DEFORMITY [None]
  - HYPOVOLAEMIA [None]
  - NUCLEAR MAGNETIC RESONANCE IMAGING ABNORMAL [None]
  - RALES [None]
  - RHONCHI [None]
  - FLATULENCE [None]
  - PYREXIA [None]
  - RENAL FAILURE [None]
  - METABOLIC ENCEPHALOPATHY [None]
  - BRONCHOSPASM [None]
  - EYE SWELLING [None]
  - FALL [None]
  - NAUSEA [None]
  - CONFUSIONAL STATE [None]
  - CORONARY ARTERY DISEASE [None]
  - DECREASED ACTIVITY [None]
  - ANHEDONIA [None]
  - ATELECTASIS [None]
  - PACKED RED BLOOD CELL TRANSFUSION [None]
  - PLEURAL EFFUSION [None]
  - UROSEPSIS [None]
  - ANGINA UNSTABLE [None]
  - HEART RATE IRREGULAR [None]
  - HYPERAEMIA [None]
  - HYPOTENSION [None]
  - OPEN REDUCTION OF FRACTURE [None]
  - LACERATION [None]
  - VOMITING [None]
  - ATRIAL FIBRILLATION [None]
  - CATARACT OPERATION [None]
  - ECONOMIC PROBLEM [None]
  - SOCIAL PROBLEM [None]
  - IMPAIRED WORK ABILITY [None]
  - DEBRIDEMENT [None]
  - FACIAL BONES FRACTURE [None]
  - INTERVERTEBRAL DISC SPACE NARROWING [None]
  - LOCALISED OEDEMA [None]
  - OSTEOPENIA [None]
  - OEDEMA [None]
  - RHEUMATOID ARTHRITIS [None]
  - DIZZINESS [None]
  - VISUAL ACUITY REDUCED [None]
  - BRONCHITIS [None]
  - HEAD INJURY [None]
  - ANAEMIA [None]
  - EMOTIONAL DISTRESS [None]
  - DYSPHAGIA [None]
  - NECK PAIN [None]
  - OSTEOARTHRITIS [None]
  - SOFT TISSUE INFLAMMATION [None]
  - URINARY TRACT INFECTION [None]
  - OSTEOMYELITIS [None]
  - CELLULITIS [None]
  - SWELLING [None]
  - FEMORAL NECK FRACTURE [None]
  - ILL-DEFINED DISORDER [None]
  - ABDOMINAL DISTENSION [None]
  - CARDIAC MURMUR [None]
  - CARDIOMEGALY [None]
  - EXCORIATION [None]
  - LEFT VENTRICULAR DYSFUNCTION [None]
  - LOCALISED INFECTION [None]
  - OSTEOPOROSIS [None]
  - OXYGEN SATURATION DECREASED [None]
  - TENDERNESS [None]
  - HYPERTENSION [None]
  - HIP FRACTURE [None]
  - WOUND DRAINAGE [None]
  - CORONARY ARTERY BYPASS [None]
  - INJURY [None]
  - LOSS OF EMPLOYMENT [None]
  - ANXIETY [None]
  - CARDIAC VALVE DISEASE [None]
  - BRADYCARDIA [None]
  - DECUBITUS ULCER [None]
  - ECHOCARDIOGRAM ABNORMAL [None]
  - ENTEROCOCCAL INFECTION [None]
  - INFLAMMATION [None]
  - PAIN IN EXTREMITY [None]
  - PURULENT DISCHARGE [None]
  - RENAL CYST [None]
  - SCAN MYOCARDIAL PERFUSION ABNORMAL [None]
  - TOXIC ENCEPHALOPATHY [None]
  - CHOLELITHIASIS [None]
  - HYPOXIA [None]
  - ECCHYMOSIS [None]
  - ANGINA PECTORIS [None]
  - RENAL FAILURE ACUTE [None]
  - BREATH SOUNDS ABNORMAL [None]
  - CHEST X-RAY ABNORMAL [None]
  - COMPUTERISED TOMOGRAM ABNORMAL [None]
  - HEADACHE [None]
  - LABORATORY TEST ABNORMAL [None]
  - PYURIA [None]
  - ROTATOR CUFF SYNDROME [None]
  - SKIN NECROSIS [None]
  - SKIN ULCER [None]
